FAERS Safety Report 18648314 (Version 1)
Quarter: 2020Q4

REPORT INFORMATION
  Report Type: Spontaneous
  Country: US (occurrence: US)
  Receive Date: 20201221
  Receipt Date: 20201221
  Transmission Date: 20210114
  Serious: No
  Sender: FDA-Public Use
  Company Number: None

PATIENT
  Age: 74 Year
  Sex: Male

DRUGS (1)
  1. DONEPEZIL (DONEPEZIL HCL 10MG TAB) [Suspect]
     Active Substance: DONEPEZIL HYDROCHLORIDE
     Dates: start: 20201026

REACTIONS (1)
  - Hallucination [None]

NARRATIVE: CASE EVENT DATE: 20201026
